APPROVED DRUG PRODUCT: VENLAFAXINE HYDROCHLORIDE
Active Ingredient: VENLAFAXINE HYDROCHLORIDE
Strength: EQ 75MG BASE
Dosage Form/Route: CAPSULE, EXTENDED RELEASE;ORAL
Application: A078789 | Product #002
Applicant: PHARMOBEDIENT CONSULTING LLC
Approved: Jun 1, 2011 | RLD: No | RS: No | Type: DISCN